FAERS Safety Report 17504473 (Version 11)
Quarter: 2023Q2

REPORT INFORMATION
  Report Type: Spontaneous
  Country: GR (occurrence: GR)
  Receive Date: 20200305
  Receipt Date: 20230525
  Transmission Date: 20230722
  Serious: Yes (Death, Life-Threatening, Hospitalization, Other)
  Sender: FDA-Public Use
  Company Number: GR-PFIZER INC-2020033859

PATIENT
  Age: 72 Year
  Sex: Male

DRUGS (24)
  1. CLARITHROMYCIN [Suspect]
     Active Substance: CLARITHROMYCIN
     Indication: Respiratory tract infection
     Dosage: UNK
     Route: 065
  2. CLARITHROMYCIN [Suspect]
     Active Substance: CLARITHROMYCIN
     Indication: Haemophagocytic lymphohistiocytosis
  3. VANCOMYCIN [Suspect]
     Active Substance: VANCOMYCIN
     Indication: Respiratory tract infection
     Dosage: UNK
     Route: 042
  4. PIPERACILLIN SODIUM\TAZOBACTAM SODIUM [Suspect]
     Active Substance: PIPERACILLIN SODIUM\TAZOBACTAM SODIUM
     Indication: Respiratory tract infection
     Dosage: UNK
     Route: 042
  5. AMOXICILLIN\CLAVULANIC ACID [Suspect]
     Active Substance: AMOXICILLIN\CLAVULANIC ACID
     Indication: Respiratory tract infection
     Dosage: UNK
     Route: 065
  6. AMOXICILLIN\CLAVULANIC ACID [Suspect]
     Active Substance: AMOXICILLIN\CLAVULANIC ACID
     Indication: Haemophagocytic lymphohistiocytosis
  7. PREDNISOLONE [Suspect]
     Active Substance: PREDNISOLONE
     Indication: Respiratory tract infection
     Dosage: UNK
     Route: 065
  8. PREDNISOLONE [Suspect]
     Active Substance: PREDNISOLONE
     Indication: Haemophagocytic lymphohistiocytosis
  9. GANCICLOVIR [Suspect]
     Active Substance: GANCICLOVIR
     Indication: Respiratory tract infection
     Dosage: UNK
     Route: 065
  10. GANCICLOVIR [Suspect]
     Active Substance: GANCICLOVIR
     Indication: Haemophagocytic lymphohistiocytosis
  11. OSELTAMIVIR PHOSPHATE [Suspect]
     Active Substance: OSELTAMIVIR PHOSPHATE
     Indication: Respiratory tract infection
     Dosage: UNK
     Route: 065
  12. OSELTAMIVIR PHOSPHATE [Suspect]
     Active Substance: OSELTAMIVIR PHOSPHATE
     Indication: Haemophagocytic lymphohistiocytosis
  13. AMBISOME [Suspect]
     Active Substance: AMPHOTERICIN B
     Indication: Respiratory tract infection
     Dosage: UNK
     Route: 042
  14. AMBISOME [Suspect]
     Active Substance: AMPHOTERICIN B
     Indication: Haemophagocytic lymphohistiocytosis
  15. AMIKACIN [Suspect]
     Active Substance: AMIKACIN
     Indication: Respiratory tract infection
     Dosage: UNK
     Route: 042
  16. CEFUROXIME [Suspect]
     Active Substance: CEFUROXIME
     Indication: Respiratory tract infection
     Dosage: UNK
     Route: 065
  17. CEFUROXIME [Suspect]
     Active Substance: CEFUROXIME
     Indication: Haemophagocytic lymphohistiocytosis
  18. IMMUNE GLOBULIN NOS [Suspect]
     Active Substance: IMMUNE GLOBULIN NOS
     Indication: Haemophagocytic lymphohistiocytosis
     Dosage: UNK
     Route: 042
  19. IMMUNE GLOBULIN NOS [Suspect]
     Active Substance: IMMUNE GLOBULIN NOS
     Indication: Respiratory tract infection
  20. MEROPENEM [Suspect]
     Active Substance: MEROPENEM
     Indication: Respiratory tract infection
     Dosage: UNK
     Route: 042
  21. MOXIFLOXACIN [Suspect]
     Active Substance: MOXIFLOXACIN
     Indication: Respiratory tract infection
     Dosage: UNK
     Route: 042
  22. VITAMIN B12 [Suspect]
     Active Substance: CYANOCOBALAMIN
     Indication: Haemophagocytic lymphohistiocytosis
     Dosage: UNK
     Route: 030
  23. VITAMIN B12 [Suspect]
     Active Substance: CYANOCOBALAMIN
     Indication: Respiratory tract infection
  24. HUMAN IMMUNOGLOBULIN G [Suspect]
     Active Substance: HUMAN IMMUNOGLOBULIN G
     Indication: Haemophagocytic lymphohistiocytosis
     Dosage: UNK
     Route: 042

REACTIONS (6)
  - Drug ineffective [Fatal]
  - Therapy non-responder [Not Recovered/Not Resolved]
  - Drug ineffective for unapproved indication [Unknown]
  - Product use in unapproved indication [Unknown]
  - Off label use [Unknown]
  - No adverse event [Unknown]
